FAERS Safety Report 9292195 (Version 1)
Quarter: 2012Q4

REPORT INFORMATION
  Report Type: Spontaneous
  Country: US (occurrence: None)
  Receive Date: 20121012
  Receipt Date: 20121012
  Transmission Date: 20130627
  Serious: Yes (Other)
  Sender: FDA-Public Use
  Company Number: 2012P1060164

PATIENT
  Age: 56 Year
  Sex: Male

DRUGS (10)
  1. FLUOROURACIL [Suspect]
     Indication: ACTINIC KERATOSIS
     Route: 061
  2. TRETINOIN CREAM 0.1% [Concomitant]
  3. ACETAMINOPHEN/CODEINE [Concomitant]
  4. METFORMIN HYDROCHLORIDE [Concomitant]
  5. ENALAPRIL MALEATE [Concomitant]
  6. RANITIDINE HYDROCHLORIDE [Concomitant]
  7. SIMVASTATIN [Concomitant]
  8. TRIAMTERENE/HYDROCHLOROTHIAZIDE [Concomitant]
  9. ASPIRIN [Concomitant]
  10. OMEPRAZOLE [Concomitant]

REACTIONS (4)
  - Intertrigo [None]
  - Squamous cell carcinoma [None]
  - Rash [None]
  - Scar [None]
